FAERS Safety Report 4288593-9 (Version None)
Quarter: 2004Q1

REPORT INFORMATION
  Report Type: 
  Country: None (occurrence: None)
  Receive Date: 20040205
  Receipt Date: 20040119
  Transmission Date: 20041129
  Serious: Yes (Other)
  Sender: FDA-Public Use
  Company Number: US_0401100047

PATIENT
  Sex: Male
  Weight: 129 kg

DRUGS (3)
  1. HUMALOG [Suspect]
     Dosage: R60 U/3 DAY
  2. HUMULIN N [Suspect]
     Dosage: 140 U/2 DAY
  3. AMIODARONE [Concomitant]

REACTIONS (12)
  - ARTHRITIS [None]
  - ARTHROPATHY [None]
  - BLOOD GLUCOSE INCREASED [None]
  - CARDIAC FAILURE CONGESTIVE [None]
  - CATARACT [None]
  - DIFFICULTY IN WALKING [None]
  - GOUT [None]
  - HYPOAESTHESIA [None]
  - LUNG INJURY [None]
  - MYOCARDIAL INFARCTION [None]
  - NEUROPATHY [None]
  - PAIN [None]
